FAERS Safety Report 24831813 (Version 1)
Quarter: 2025Q1

REPORT INFORMATION
  Report Type: Spontaneous
  Country: CN (occurrence: CN)
  Receive Date: 20250110
  Receipt Date: 20250110
  Transmission Date: 20250409
  Serious: Yes (Life-Threatening, Other)
  Sender: PURDUE
  Company Number: CN-NAPPMUNDI-GBR-2025-0122616

PATIENT
  Age: 74 Year
  Sex: Female
  Weight: 34 kg

DRUGS (3)
  1. OXYCONTIN [Suspect]
     Active Substance: OXYCODONE HYDROCHLORIDE
     Indication: Bone pain
     Dosage: 20 MILLIGRAM, Q12H
     Route: 048
     Dates: start: 20241122, end: 20241212
  2. OXYCONTIN [Suspect]
     Active Substance: OXYCODONE HYDROCHLORIDE
     Dosage: 40 MILLIGRAM, Q12H
     Route: 048
     Dates: start: 20241213, end: 20241216
  3. MORPHINE HYDROCHLORIDE [Suspect]
     Active Substance: MORPHINE HYDROCHLORIDE
     Indication: Analgesic therapy
     Dosage: 20 MILLIGRAM, TID
     Route: 048
     Dates: start: 20241211, end: 20241215

REACTIONS (4)
  - Respiratory depression [Recovering/Resolving]
  - Blood pressure decreased [Recovering/Resolving]
  - Coma [Recovering/Resolving]
  - Miosis [Unknown]

NARRATIVE: CASE EVENT DATE: 20241217
